FAERS Safety Report 8362115 (Version 2)
Quarter: 2012Q4

REPORT INFORMATION
  Report Type: 
  Country: AR (occurrence: AR)
  Receive Date: 20120130
  Receipt Date: 20121219
  Transmission Date: 20130627
  Serious: Yes (Death, Hospitalization, Other)
  Sender: FDA-Public Use
  Company Number: PHHY2012AR005076

PATIENT
  Sex: Male

DRUGS (4)
  1. EXELON PATCH [Suspect]
     Indication: DEMENTIA ALZHEIMER^S TYPE
     Dosage: 9.5 mg, QOD
     Route: 062
     Dates: start: 2004
  2. MEMANTINE [Concomitant]
  3. ACYCLOVIR [Concomitant]
  4. VITAMINS NOS [Concomitant]

REACTIONS (5)
  - Leukaemia [Fatal]
  - Mycosis fungoides stage IV [Not Recovered/Not Resolved]
  - Mycosis fungoides [Not Recovered/Not Resolved]
  - Cognitive disorder [Not Recovered/Not Resolved]
  - Renal failure [Unknown]
